FAERS Safety Report 5920194-6 (Version None)
Quarter: 2008Q4

REPORT INFORMATION
  Report Type: 
  Country: None (occurrence: None)
  Receive Date: 20081016
  Receipt Date: 20081008
  Transmission Date: 20090506
  Serious: Yes (Hospitalization, Other)
  Sender: FDA-Public Use
  Company Number: FR-JNJFOC-20080706528

PATIENT
  Sex: Male
  Weight: 57 kg

DRUGS (8)
  1. REMINYL LP [Suspect]
     Indication: COGNITIVE DISORDER
     Route: 048
     Dates: start: 20080612, end: 20080616
  2. THERALENE [Suspect]
     Indication: INSOMNIA
     Route: 048
  3. THERALENE [Suspect]
     Indication: ANXIETY
     Route: 048
  4. DEPAKENE [Suspect]
     Indication: DRUG THERAPY
     Dosage: 300 MG IN THE MORNING, 600 MG IN THE EVENING.
     Route: 048
  5. ZYPREXA [Concomitant]
     Indication: PSYCHOTIC DISORDER
     Route: 048
  6. PARKINANE LP [Concomitant]
     Indication: PARKINSON'S DISEASE
     Route: 048
  7. PRAZEPAM [Concomitant]
     Indication: ANXIETY
     Route: 048
  8. ATARAX [Concomitant]
     Indication: SEDATIVE THERAPY
     Dosage: 300 MG IN THE MORNING, 600 MG IN THE EVENING.
     Route: 048

REACTIONS (3)
  - GAIT DISTURBANCE [None]
  - HYPERTONIA [None]
  - MUSCLE RIGIDITY [None]
